FAERS Safety Report 20662852 (Version 3)
Quarter: 2022Q2

REPORT INFORMATION
  Report Type: Spontaneous
  Country: CO (occurrence: CO)
  Receive Date: 20220401
  Receipt Date: 20220419
  Transmission Date: 20220721
  Serious: Yes (Hospitalization)
  Sender: FDA-Public Use
  Company Number: CO-BAYER-2022A046722

PATIENT
  Age: 78 Year
  Sex: Female

DRUGS (1)
  1. ADEMPAS [Suspect]
     Active Substance: RIOCIGUAT
     Indication: Chronic obstructive pulmonary disease
     Dosage: UNK
     Dates: start: 2018

REACTIONS (4)
  - Labile blood pressure [None]
  - Incorrect product administration duration [None]
  - Product availability issue [None]
  - Product prescribing issue [None]

NARRATIVE: CASE EVENT DATE: 20220101
